FAERS Safety Report 9467949 (Version 2)
Quarter: 2013Q3

REPORT INFORMATION
  Report Type: Spontaneous
  Country: DE (occurrence: DE)
  Receive Date: 20130821
  Receipt Date: 20130830
  Transmission Date: 20140515
  Serious: Yes (Hospitalization)
  Sender: FDA-Public Use
  Company Number: DE-ABBOTT-13X-062-1134979-00

PATIENT
  Age: 67 Year
  Sex: Female

DRUGS (10)
  1. VALPROATE SALT NOT SPECIFIED [Suspect]
     Indication: DEPRESSION
  2. TRAMADOL [Suspect]
     Indication: PRODUCT USED FOR UNKNOWN INDICATION
  3. BROMAZEPAM [Suspect]
     Indication: PRODUCT USED FOR UNKNOWN INDICATION
  4. NICOTINE [Suspect]
     Indication: PRODUCT USED FOR UNKNOWN INDICATION
  5. AMISULPRIDE [Concomitant]
     Indication: PRODUCT USED FOR UNKNOWN INDICATION
  6. AMISULPRIDE [Concomitant]
     Dosage: TITRATED UP TO 100 MG/DAY WITHIN THE FIRST WEEK
  7. ESCITALOPRAM [Concomitant]
     Indication: DEPRESSION
  8. OLANZAPINE [Concomitant]
     Indication: INSOMNIA
  9. OLANZAPINE [Concomitant]
     Dosage: TITRATED UP TO 30 MG/DAY
  10. MELPERONE [Concomitant]
     Indication: DEPRESSION

REACTIONS (3)
  - Drug dependence [Recovered/Resolved]
  - Off label use [Unknown]
  - Delusional disorder, erotomanic type [Not Recovered/Not Resolved]
